FAERS Safety Report 24825406 (Version 1)
Quarter: 2025Q1

REPORT INFORMATION
  Report Type: Spontaneous
  Country: US (occurrence: US)
  Receive Date: 20250109
  Receipt Date: 20250109
  Transmission Date: 20250409
  Serious: Yes (Other)
  Sender: MERCK
  Company Number: US-009507513-2501USA001650

PATIENT
  Age: 86 Year
  Sex: Female

DRUGS (1)
  1. KEYTRUDA [Suspect]
     Active Substance: PEMBROLIZUMAB

REACTIONS (3)
  - Radiotherapy [Unknown]
  - Rib fracture [Unknown]
  - Cough [Unknown]
